FAERS Safety Report 21576554 (Version 1)
Quarter: 2022Q4

REPORT INFORMATION
  Report Type: Report from Study
  Country: EG (occurrence: EG)
  Receive Date: 20221110
  Receipt Date: 20221110
  Transmission Date: 20230113
  Serious: Yes (Other)
  Sender: FDA-Public Use
  Company Number: EG-002147023-NVSC2022EG225109

PATIENT
  Age: 8 Year
  Sex: Female

DRUGS (4)
  1. OMNITROPE [Suspect]
     Active Substance: SOMATROPIN
     Indication: Short stature
     Dosage: 1 MG, QD
     Route: 058
     Dates: start: 20220925, end: 20220929
  2. OMNITROPE [Suspect]
     Active Substance: SOMATROPIN
     Dosage: 1 MG, QD
     Route: 058
     Dates: start: 20221009
  3. VIDROP [Concomitant]
     Indication: Vitamin supplementation
     Dosage: HALF DROPFUL, QD
     Route: 048
     Dates: start: 202207
  4. ALVITAL [Concomitant]
     Indication: Vitamin supplementation
     Dosage: ONE TABLESPOONFUL, QD
     Route: 048
     Dates: start: 202207

REACTIONS (6)
  - Crying [Not Recovered/Not Resolved]
  - Nervousness [Not Recovered/Not Resolved]
  - Underdose [Not Recovered/Not Resolved]
  - Wrong technique in product usage process [Not Recovered/Not Resolved]
  - Product availability issue [Not Recovered/Not Resolved]
  - Product dose omission issue [Not Recovered/Not Resolved]

NARRATIVE: CASE EVENT DATE: 20220925
